FAERS Safety Report 13324982 (Version 3)
Quarter: 2019Q2

REPORT INFORMATION
  Report Type: Spontaneous
  Country: US (occurrence: US)
  Receive Date: 20170310
  Receipt Date: 20190530
  Transmission Date: 20190711
  Serious: Yes (Other)
  Sender: FDA-Public Use
  Company Number: US-009507513-1703USA004385

PATIENT
  Age: 34 Year
  Sex: Male

DRUGS (8)
  1. DEXAMETHASONE. [Suspect]
     Active Substance: DEXAMETHASONE
     Indication: ADULT T-CELL LYMPHOMA/LEUKAEMIA
     Dosage: 3 CYCLES
  2. CYCLOPHOSPHAMIDE. [Suspect]
     Active Substance: CYCLOPHOSPHAMIDE
     Indication: ADULT T-CELL LYMPHOMA/LEUKAEMIA
     Dosage: 3 CYCLES
  3. INTRON A [Suspect]
     Active Substance: INTERFERON ALFA-2B
     Indication: HUMAN T-CELL LYMPHOTROPIC VIRUS TYPE I INFECTION
  4. ZIDOVUDINE. [Suspect]
     Active Substance: ZIDOVUDINE
     Indication: HUMAN T-CELL LYMPHOTROPIC VIRUS TYPE I INFECTION
  5. ADRIAMYCIN [Suspect]
     Active Substance: DOXORUBICIN HYDROCHLORIDE
     Indication: ADULT T-CELL LYMPHOMA/LEUKAEMIA
     Dosage: 3 CYCLES
  6. ZIDOVUDINE. [Suspect]
     Active Substance: ZIDOVUDINE
     Indication: CHRONIC HEPATITIS B
  7. VINCRISTINE [Suspect]
     Active Substance: VINCRISTINE
     Indication: ADULT T-CELL LYMPHOMA/LEUKAEMIA
     Dosage: 3 CYCLES
  8. INTRON A [Suspect]
     Active Substance: INTERFERON ALFA-2B
     Indication: CHRONIC HEPATITIS B

REACTIONS (2)
  - Adult T-cell lymphoma/leukaemia [Unknown]
  - Drug ineffective [Unknown]
